FAERS Safety Report 13050855 (Version 1)
Quarter: 2016Q4

REPORT INFORMATION
  Report Type: Spontaneous
  Country: US (occurrence: US)
  Receive Date: 20161221
  Receipt Date: 20161221
  Transmission Date: 20170207
  Serious: No
  Sender: FDA-Public Use
  Company Number: US-NOVOPROD-488640

PATIENT
  Age: 62 Year
  Sex: Male

DRUGS (7)
  1. LEVEMIR [Suspect]
     Active Substance: INSULIN DETEMIR
     Indication: TYPE 2 DIABETES MELLITUS
     Dosage: 10 U, QD
     Route: 058
  2. DEPAKOTE [Concomitant]
     Active Substance: DIVALPROEX SODIUM
     Indication: BIPOLAR DISORDER
     Dosage: 250 MG, QD
     Route: 048
  3. LEVEMIR [Suspect]
     Active Substance: INSULIN DETEMIR
     Dosage: 16 U, QD
     Route: 058
     Dates: start: 20160331
  4. LEVEMIR [Suspect]
     Active Substance: INSULIN DETEMIR
     Dosage: 17 U, QD
     Route: 058
     Dates: start: 20160331
  5. LEVEMIR [Suspect]
     Active Substance: INSULIN DETEMIR
     Dosage: 55 U, QD
     Route: 058
  6. ARTANE [Concomitant]
     Active Substance: TRIHEXYPHENIDYL HYDROCHLORIDE
     Indication: BIPOLAR DISORDER
     Dosage: 1 TAB, QD
     Route: 048
  7. HALDOL [Concomitant]
     Active Substance: HALOPERIDOL
     Indication: BIPOLAR DISORDER
     Dosage: ONCE EVERY 28 DAYS 100MG PER

REACTIONS (3)
  - Blood glucose increased [Not Recovered/Not Resolved]
  - Muscle spasms [Recovered/Resolved]
  - Drug intolerance [Unknown]

NARRATIVE: CASE EVENT DATE: 20160404
